FAERS Safety Report 9981374 (Version 1)
Quarter: 2014Q1

REPORT INFORMATION
  Report Type: Spontaneous
  Country: US (occurrence: None)
  Receive Date: 20140306
  Receipt Date: 20140306
  Transmission Date: 20141002
  Serious: Yes (Other)
  Sender: FDA-Public Use
  Company Number: None

PATIENT
  Age: 56 Year
  Sex: Male
  Weight: 108.86 kg

DRUGS (1)
  1. GAVILYTE -N [Suspect]
     Indication: COLONOSCOPY
     Route: 048
     Dates: start: 20140225, end: 20140225

REACTIONS (8)
  - Flushing [None]
  - Heart rate increased [None]
  - Hypopnoea [None]
  - Respiratory rate increased [None]
  - Erythema [None]
  - Dyspnoea [None]
  - Pruritus generalised [None]
  - Flushing [None]
